FAERS Safety Report 19262815 (Version 2)
Quarter: 2021Q2

REPORT INFORMATION
  Report Type: Other
  Country: US (occurrence: US)
  Receive Date: 20210517
  Receipt Date: 20210524
  Transmission Date: 20210717
  Serious: Yes (Hospitalization)
  Sender: FDA-Public Use
  Company Number: US-INTERCEPT-PM2021001494

PATIENT
  Age: 61 Year
  Sex: Female

DRUGS (2)
  1. OCALIVA [Suspect]
     Active Substance: OBETICHOLIC ACID
     Dosage: 10 MILLIGRAM, QD
     Route: 048
     Dates: start: 20170508
  2. OCALIVA [Suspect]
     Active Substance: OBETICHOLIC ACID
     Indication: PRIMARY BILIARY CHOLANGITIS
     Dosage: 5 MILLIGRAM, QD
     Route: 048
     Dates: start: 20170412, end: 2017

REACTIONS (4)
  - Living in residential institution [Unknown]
  - Hip fracture [Unknown]
  - Product dose omission issue [Unknown]
  - Hip surgery [Recovered/Resolved]

NARRATIVE: CASE EVENT DATE: 202105
